FAERS Safety Report 7316181-6 (Version None)
Quarter: 2011Q1

REPORT INFORMATION
  Report Type: 
  Country: None (occurrence: None)
  Receive Date: 20110225
  Receipt Date: 20110216
  Transmission Date: 20110831
  Serious: Yes (Other)
  Sender: FDA-Public Use
  Company Number: BE-ASTRAZENECA-2011SE09086

PATIENT
  Age: 38 Year
  Sex: Female

DRUGS (2)
  1. SEROQUEL XR [Suspect]
     Indication: DEPRESSION
     Route: 048
     Dates: start: 20110214
  2. REFRESH MEDICATION [Concomitant]
     Dosage: TWO DF AT TEH MORNING AND 2 AT MIDDDAY

REACTIONS (2)
  - LOSS OF CONSCIOUSNESS [None]
  - FATIGUE [None]
